FAERS Safety Report 21197208 (Version 1)
Quarter: 2022Q3

REPORT INFORMATION
  Report Type: Spontaneous
  Country: PT (occurrence: PT)
  Receive Date: 20220810
  Receipt Date: 20220810
  Transmission Date: 20221026
  Serious: Yes (Disabling, Other)
  Sender: FDA-Public Use
  Company Number: PT-PFM-2022-05667

PATIENT
  Age: 37 Year
  Sex: Female

DRUGS (5)
  1. PACLITAXEL [Suspect]
     Active Substance: PACLITAXEL
     Indication: Breast cancer
     Dosage: UNK
     Route: 065
     Dates: start: 202201, end: 202202
  2. PACLITAXEL [Suspect]
     Active Substance: PACLITAXEL
     Dosage: UNK
     Route: 065
     Dates: start: 202102
  3. VINORELBINE TARTRATE [Suspect]
     Active Substance: VINORELBINE TARTRATE
     Indication: Breast cancer
     Dosage: 60 MG
     Route: 065
     Dates: start: 202201, end: 202202
  4. CARBOPLATIN\GEMCITABINE [Suspect]
     Active Substance: CARBOPLATIN\GEMCITABINE
     Indication: Breast cancer
     Dosage: UNK
     Route: 065
     Dates: start: 202201, end: 202202
  5. CARBOPLATIN\GEMCITABINE [Suspect]
     Active Substance: CARBOPLATIN\GEMCITABINE
     Dosage: UNK
     Route: 065
     Dates: start: 202102

REACTIONS (4)
  - Jaundice [Unknown]
  - Ascites [Unknown]
  - Vomiting [Unknown]
  - Nausea [Unknown]
